FAERS Safety Report 6634017-3 (Version None)
Quarter: 2010Q1

REPORT INFORMATION
  Report Type: 
  Country: None (occurrence: None)
  Receive Date: 20100315
  Receipt Date: 20100308
  Transmission Date: 20100710
  Serious: Yes (Death)
  Sender: FDA-Public Use
  Company Number: PHHO2010AR03701

PATIENT
  Sex: Male
  Weight: 89 kg

DRUGS (1)
  1. EXELON [Suspect]
     Indication: DEMENTIA
     Dosage: 10MG
     Route: 062
     Dates: start: 20090513, end: 20100224

REACTIONS (1)
  - ACUTE MYOCARDIAL INFARCTION [None]
